FAERS Safety Report 4674994-3 (Version None)
Quarter: 2005Q2

REPORT INFORMATION
  Report Type: 
  Country: None (occurrence: None)
  Receive Date: 20050525
  Receipt Date: 20050513
  Transmission Date: 20051028
  Serious: Yes (Hospitalization)
  Sender: FDA-Public Use
  Company Number: WAES 0505USA01703

PATIENT
  Age: 79 Year
  Sex: Female
  Weight: 43.9989 kg

DRUGS (5)
  1. CLINORIL [Suspect]
     Dates: start: 20030801
  2. IMURAN [Suspect]
     Dates: start: 20030801
  3. TRACLEER [Suspect]
     Indication: PULMONARY HYPERTENSION
     Dosage: 62.5 MG/ BID/ PO
     Route: 048
     Dates: start: 20031002, end: 20031104
  4. TRACLEER [Suspect]
     Indication: PULMONARY HYPERTENSION
     Dosage: 125 MG/ BID/ PO
     Route: 048
     Dates: start: 20031105, end: 20050401
  5. TRACLEER [Suspect]
     Indication: PULMONARY HYPERTENSION
     Dates: start: 20050415

REACTIONS (3)
  - AUTOIMMUNE HEPATITIS [None]
  - HEPATIC CIRRHOSIS [None]
  - PANCREATITIS [None]
